FAERS Safety Report 16444962 (Version 1)
Quarter: 2019Q2

REPORT INFORMATION
  Report Type: Spontaneous
  Country: DE (occurrence: DE)
  Receive Date: 20190618
  Receipt Date: 20190618
  Transmission Date: 20190711
  Serious: Yes (Hospitalization, Other)
  Sender: FDA-Public Use
  Company Number: DE-AUROBINDO-AUR-APL-2019-034400

PATIENT

DRUGS (3)
  1. OCTENIDERM [Suspect]
     Active Substance: ISOPROPYL ALCOHOL\OCTENIDINE HYDROCHLORIDE\PROPYL ALCOHOL
     Indication: INFECTION PROPHYLAXIS
     Dosage: UNK
     Route: 003
     Dates: start: 20190116
  2. SUFENTANIL [Suspect]
     Active Substance: SUFENTANIL
     Indication: PRODUCT USED FOR UNKNOWN INDICATION
     Dosage: UNK
     Route: 065
  3. BUPIVACAINE 5MG/ML [Suspect]
     Active Substance: BUPIVACAINE
     Indication: SPINAL ANAESTHESIA
     Dosage: UNK
     Route: 065

REACTIONS (8)
  - Anorectal disorder [Unknown]
  - Arachnoiditis [Not Recovered/Not Resolved]
  - Paraparesis [Not Recovered/Not Resolved]
  - Headache [Recovered/Resolved]
  - Bladder dysfunction [Unknown]
  - Radiculopathy [Not Recovered/Not Resolved]
  - Pleocytosis [Not Recovered/Not Resolved]
  - Malaise [Recovered/Resolved]

NARRATIVE: CASE EVENT DATE: 201901
